FAERS Safety Report 15669177 (Version 2)
Quarter: 2022Q4

REPORT INFORMATION
  Report Type: Report from Study
  Country: FR (occurrence: FR)
  Receive Date: 20181129
  Receipt Date: 20221212
  Transmission Date: 20230113
  Serious: Yes (Hospitalization, Other)
  Sender: FDA-Public Use
  Company Number: FR-AMGEN-FRACT2018162595

PATIENT
  Age: 80 Year
  Sex: Male
  Weight: 63 kg

DRUGS (13)
  1. PANITUMUMAB [Suspect]
     Active Substance: PANITUMUMAB
     Indication: Colorectal cancer
     Dosage: CUMULATIVE DOSE: 4940 MG
     Route: 042
     Dates: start: 20171121
  2. PANITUMUMAB [Suspect]
     Active Substance: PANITUMUMAB
     Dosage: 420 MG (PRIOR TO SAE)
     Route: 042
     Dates: start: 20180601
  3. FLUOROURACIL [Suspect]
     Active Substance: FLUOROURACIL
     Indication: Colorectal cancer
     Dosage: CUMULATIVE DOSE: 8200 MG (BOLUS)
     Route: 042
     Dates: start: 20171121
  4. FLUOROURACIL [Suspect]
     Active Substance: FLUOROURACIL
     Dosage: CUMULATIVE DOSE: 43650 MG
     Route: 042
     Dates: start: 20171121
  5. FLUOROURACIL [Suspect]
     Active Substance: FLUOROURACIL
     Dosage: 700 MG (BOLUS) PRIOR TO SAE
     Route: 042
     Dates: start: 20180601
  6. FLUOROURACIL [Suspect]
     Active Substance: FLUOROURACIL
     Dosage: 3850 MILLIGRAM (CONTINUOUS) PRIOR TO SAE
     Route: 042
     Dates: start: 20180603
  7. OXALIPLATIN [Suspect]
     Active Substance: OXALIPLATIN
     Indication: Colorectal cancer
     Dosage: CUMULATIVE DOSE: 1170 MG
     Route: 042
     Dates: start: 20171121
  8. OXALIPLATIN [Suspect]
     Active Substance: OXALIPLATIN
     Dosage: 95 MG, PRIOR TO SAE
     Route: 042
     Dates: start: 20180601
  9. IRINOTECAN [Suspect]
     Active Substance: IRINOTECAN
     Indication: Colorectal cancer
     Dosage: CUMULATIVE DOSE: 2860 MG
     Route: 042
     Dates: start: 20171121
  10. IRINOTECAN [Suspect]
     Active Substance: IRINOTECAN
     Dosage: 260 MG (PRIOR TO SAE)
     Route: 042
     Dates: start: 20180601
  11. LEUCOVORIN CALCIUM [Suspect]
     Active Substance: LEUCOVORIN CALCIUM
     Indication: Colorectal cancer
     Dosage: CUMULATIE DOSE: 3080 MG
     Route: 042
     Dates: start: 20171121
  12. LEUCOVORIN CALCIUM [Suspect]
     Active Substance: LEUCOVORIN CALCIUM
     Dosage: 280 MG (PRIOR TO SAE)
     Route: 042
     Dates: start: 20180601
  13. INNOHEP [Concomitant]
     Active Substance: TINZAPARIN SODIUM
     Indication: Pulmonary embolism
     Dosage: UNK
     Route: 058
     Dates: start: 20180404

REACTIONS (1)
  - Renal failure [Recovered/Resolved]

NARRATIVE: CASE EVENT DATE: 20180613
